FAERS Safety Report 9981851 (Version 1)
Quarter: 2014Q1

REPORT INFORMATION
  Report Type: Report from Study
  Country: US (occurrence: US)
  Receive Date: 20140307
  Receipt Date: 20140307
  Transmission Date: 20141002
  Serious: No
  Sender: FDA-Public Use
  Company Number: US-ABBVIE-13P-163-1181421-00

PATIENT
  Sex: Female
  Weight: 129.39 kg

DRUGS (19)
  1. HUMIRA [Suspect]
     Indication: COLITIS ULCERATIVE
     Dates: start: 200301
  2. HUMIRA [Suspect]
     Indication: RHEUMATOID ARTHRITIS
  3. HUMIRA [Suspect]
     Indication: RHEUMATOID ARTHRITIS
  4. HUMIRA [Suspect]
     Indication: COLITIS ULCERATIVE
  5. PREDNISONE [Suspect]
     Indication: COLITIS ULCERATIVE
  6. PREDNISONE [Suspect]
     Indication: RHEUMATOID ARTHRITIS
  7. DEXILANT [Concomitant]
     Indication: DYSPEPSIA
  8. QUINAPRIL [Concomitant]
     Indication: HYPERTENSION
  9. ZIPRASIDONE [Concomitant]
     Indication: BIPOLAR DISORDER
  10. METOPROLOL SUCCINATE [Concomitant]
     Indication: HYPERTENSION
  11. SIMVASTATIN [Concomitant]
     Indication: BLOOD CHOLESTEROL INCREASED
  12. LORAZEPAM [Concomitant]
     Indication: ANXIETY
  13. MIRTAZAPINE [Concomitant]
     Indication: DEPRESSION
  14. CALCIUM [Concomitant]
     Indication: OSTEOPOROSIS
  15. RECLAST [Concomitant]
     Indication: OSTEOPOROSIS
  16. MULTIVITAMIN [Concomitant]
     Indication: VITAMIN SUPPLEMENTATION
  17. IRON [Concomitant]
     Indication: MINERAL SUPPLEMENTATION
  18. VITAMIN C [Concomitant]
     Indication: VITAMIN SUPPLEMENTATION
  19. ACETAMINOPHEN [Concomitant]
     Indication: OSTEOARTHRITIS

REACTIONS (3)
  - Weight increased [Unknown]
  - Stress [Unknown]
  - Colitis ulcerative [Not Recovered/Not Resolved]
